FAERS Safety Report 8943093 (Version 1)
Quarter: 2012Q4

REPORT INFORMATION
  Report Type: 
  Country: CO (occurrence: CO)
  Receive Date: 20121204
  Receipt Date: 20121204
  Transmission Date: 20130627
  Serious: Yes (Other)
  Sender: FDA-Public Use
  Company Number: CO-PFIZER INC-2012301976

PATIENT
  Sex: Male

DRUGS (1)
  1. GENOTROPIN [Suspect]

REACTIONS (1)
  - Retinal haemorrhage [Unknown]
